FAERS Safety Report 9934715 (Version 1)
Quarter: 2014Q1

REPORT INFORMATION
  Report Type: Spontaneous
  Country: CZ (occurrence: CZ)
  Receive Date: 20140228
  Receipt Date: 20140228
  Transmission Date: 20141002
  Serious: Yes (Life-Threatening, Hospitalization, Disabling, Other)
  Sender: FDA-Public Use
  Company Number: CZ-BAYER-2014-026374

PATIENT
  Age: 41 Year
  Sex: Female
  Weight: 75 kg

DRUGS (1)
  1. MIRENA [Suspect]
     Indication: METRORRHAGIA
     Dosage: UNK
     Route: 015
     Dates: start: 2009

REACTIONS (2)
  - Ischaemic stroke [Unknown]
  - Thrombotic stroke [Unknown]
